FAERS Safety Report 10246102 (Version 2)
Quarter: 2014Q3

REPORT INFORMATION
  Report Type: Spontaneous
  Country: US (occurrence: None)
  Receive Date: 20140617
  Receipt Date: 20140708
  Transmission Date: 20150326
  Serious: Yes (Other)
  Sender: FDA-Public Use
  Company Number: 2014VER00023

PATIENT
  Age: 43 Year
  Sex: Male

DRUGS (1)
  1. MYORISAN [Suspect]
     Active Substance: ISOTRETINOIN
     Indication: LUNG NEOPLASM MALIGNANT
     Dates: start: 20130327, end: 20130427

REACTIONS (2)
  - Lung neoplasm malignant [None]
  - Off label use [None]

NARRATIVE: CASE EVENT DATE: 2013
